FAERS Safety Report 7734064-4 (Version None)
Quarter: 2011Q3

REPORT INFORMATION
  Report Type: 
  Country: None (occurrence: None)
  Receive Date: 20110907
  Receipt Date: 20110829
  Transmission Date: 20111222
  Serious: Yes (Hospitalization)
  Sender: FDA-Public Use
  Company Number: JP-ROCHE-795347

PATIENT
  Age: 61 Year
  Sex: Female
  Weight: 64 kg

DRUGS (9)
  1. KYTRIL [Concomitant]
     Route: 041
  2. AVASTIN [Suspect]
     Dosage: NOTE: DOSAGE IS UNCERTAIN.
     Route: 041
     Dates: start: 20110610, end: 20110722
  3. OXALIPLATIN [Suspect]
     Indication: LARGE INTESTINE CARCINOMA
     Dosage: NOTE: DOSAGE IS UNCERTAIN.
     Route: 041
     Dates: start: 20100226, end: 20101119
  4. OXALIPLATIN [Suspect]
     Route: 041
     Dates: start: 20110722
  5. AVASTIN [Suspect]
     Indication: RECTAL CANCER RECURRENT
     Dosage: DRUG: AVASTINA400MG/16ML, NOTE: DOSAGE IS UNCERTAIN.
     Route: 041
     Dates: start: 20100226, end: 20101119
  6. XELODA [Suspect]
     Dosage: DRUG: XELODA 300, NOTE: DOSAGE IS UNCERTAIN.
     Route: 048
     Dates: start: 20110610
  7. OXALIPLATIN [Suspect]
     Dosage: NOTE: DOSAGE IS UNCERTAIN.
     Route: 041
     Dates: start: 20110610, end: 20110101
  8. DECADRON [Concomitant]
     Route: 065
  9. XELODA [Suspect]
     Indication: RECTAL CANCER RECURRENT
     Dosage: DRUG: XELODA 300, NOTE: DOSAGE IS UNCERTAIN.
     Route: 048
     Dates: start: 20100226, end: 20101119

REACTIONS (5)
  - HYPERTENSION [None]
  - PYREXIA [None]
  - BACK PAIN [None]
  - TREMOR [None]
  - CHILLS [None]
